FAERS Safety Report 5121983-0 (Version None)
Quarter: 2006Q4

REPORT INFORMATION
  Report Type: 
  Country: None (occurrence: None)
  Receive Date: 20061003
  Receipt Date: 20060921
  Transmission Date: 20070319
  Serious: Yes (Hospitalization, Disabling)
  Sender: FDA-Public Use
  Company Number: 2006114417

PATIENT
  Age: 1 Month
  Sex: Male

DRUGS (10)
  1. HEPARIN SODIUM [Suspect]
  2. NITROGLICERINA (GLYCERYL TRINITRATE) [Suspect]
     Dosage: TOPICAL
     Route: 061
  3. MEDROL [Suspect]
  4. IMMUNE GLOBULIN INTRAVENOUS (HUMAN) [Suspect]
     Dosage: 2000 MG/KG
  5. DIPYRIDAMOLE [Suspect]
  6. ASPIRIN [Suspect]
     Dosage: 80 MG/KG
  7. CLEOCIN PEDIATRIC (CLINDAMYCIN PALMITATE HYDROCHLORIDE) [Suspect]
  8. PENICILLIN G PROCAINE [Suspect]
  9. GENTAMICIN [Suspect]
  10. REOPRO [Suspect]

REACTIONS (7)
  - BACTERIA BLOOD IDENTIFIED [None]
  - ENTEROBACTER INFECTION [None]
  - FOOT AMPUTATION [None]
  - GANGRENE [None]
  - LEG AMPUTATION [None]
  - LEUKOCYTOSIS [None]
  - PYREXIA [None]
